FAERS Safety Report 24953816 (Version 1)
Quarter: 2025Q1

REPORT INFORMATION
  Report Type: Other
  Country: GB (occurrence: GB)
  Receive Date: 20250211
  Receipt Date: 20250211
  Transmission Date: 20250409
  Serious: Yes (Other)
  Sender: ASPEN
  Company Number: GB-TAKEDA-2020TUS051575

PATIENT

DRUGS (39)
  1. DEXAMETHASONE [Suspect]
     Active Substance: DEXAMETHASONE
     Indication: Plasma cell myeloma
     Route: 065
     Dates: start: 20200729
  2. REVLIMID [Suspect]
     Active Substance: LENALIDOMIDE
     Indication: Plasma cell myeloma
     Route: 065
     Dates: start: 20210729
  3. REVLIMID [Suspect]
     Active Substance: LENALIDOMIDE
     Route: 065
  4. REVLIMID [Suspect]
     Active Substance: LENALIDOMIDE
     Route: 048
     Dates: start: 20200729
  5. REVLIMID [Suspect]
     Active Substance: LENALIDOMIDE
     Route: 065
  6. REVLIMID [Suspect]
     Active Substance: LENALIDOMIDE
     Route: 065
  7. REVLIMID [Suspect]
     Active Substance: LENALIDOMIDE
     Route: 048
     Dates: start: 20200729
  8. REVLIMID [Suspect]
     Active Substance: LENALIDOMIDE
     Route: 048
  9. REVLIMID [Suspect]
     Active Substance: LENALIDOMIDE
     Route: 065
  10. REVLIMID [Suspect]
     Active Substance: LENALIDOMIDE
     Route: 048
  11. REVLIMID [Suspect]
     Active Substance: LENALIDOMIDE
     Route: 065
  12. REVLIMID [Suspect]
     Active Substance: LENALIDOMIDE
     Route: 065
  13. REVLIMID [Suspect]
     Active Substance: LENALIDOMIDE
     Route: 065
  14. REVLIMID [Suspect]
     Active Substance: LENALIDOMIDE
     Route: 065
  15. REVLIMID [Suspect]
     Active Substance: LENALIDOMIDE
     Route: 048
  16. REVLIMID [Suspect]
     Active Substance: LENALIDOMIDE
     Route: 048
  17. REVLIMID [Suspect]
     Active Substance: LENALIDOMIDE
     Route: 065
  18. VELCADE [Suspect]
     Active Substance: BORTEZOMIB
     Indication: Plasma cell myeloma
     Route: 065
  19. VELCADE [Suspect]
     Active Substance: BORTEZOMIB
     Route: 065
  20. VELCADE [Suspect]
     Active Substance: BORTEZOMIB
     Route: 065
  21. VELCADE [Suspect]
     Active Substance: BORTEZOMIB
     Route: 065
  22. VELCADE [Suspect]
     Active Substance: BORTEZOMIB
     Route: 065
  23. VELCADE [Suspect]
     Active Substance: BORTEZOMIB
     Route: 065
  24. VELCADE [Suspect]
     Active Substance: BORTEZOMIB
     Route: 065
  25. VELCADE [Suspect]
     Active Substance: BORTEZOMIB
     Route: 065
  26. VELCADE [Suspect]
     Active Substance: BORTEZOMIB
     Route: 065
  27. VELCADE [Suspect]
     Active Substance: BORTEZOMIB
     Route: 065
  28. VELCADE [Suspect]
     Active Substance: BORTEZOMIB
     Route: 065
  29. VELCADE [Suspect]
     Active Substance: BORTEZOMIB
     Route: 065
  30. VELCADE [Suspect]
     Active Substance: BORTEZOMIB
     Route: 065
  31. VELCADE [Suspect]
     Active Substance: BORTEZOMIB
     Route: 065
  32. VELCADE [Suspect]
     Active Substance: BORTEZOMIB
     Route: 065
  33. NINLARO [Suspect]
     Active Substance: IXAZOMIB CITRATE
     Indication: Plasma cell myeloma
     Route: 048
     Dates: start: 20200729
  34. IXAZOMIB [Suspect]
     Active Substance: IXAZOMIB
     Indication: Plasma cell myeloma
     Route: 048
     Dates: start: 20200729
  35. IXAZOMIB [Suspect]
     Active Substance: IXAZOMIB
     Route: 048
     Dates: start: 20200729
  36. DENOSUMAB [Concomitant]
     Active Substance: DENOSUMAB
     Indication: Product used for unknown indication
     Route: 065
  37. DENOSUMAB [Concomitant]
     Active Substance: DENOSUMAB
     Route: 065
  38. DENOSUMAB [Concomitant]
     Active Substance: DENOSUMAB
     Route: 065
  39. COVID-19 vaccine [Concomitant]
     Indication: COVID-19 immunisation
     Route: 065

REACTIONS (17)
  - Lower respiratory tract infection [Unknown]
  - Depressed mood [Unknown]
  - Tooth fracture [Unknown]
  - Influenza [Unknown]
  - Hypoaesthesia [Unknown]
  - Pain [Unknown]
  - Localised infection [Unknown]
  - Lacrimation increased [Recovering/Resolving]
  - Bone disorder [Unknown]
  - Malaise [Unknown]
  - Urinary tract infection [Unknown]
  - Food aversion [Unknown]
  - Paraproteinaemia [Unknown]
  - Fatigue [Unknown]
  - Neutrophil count decreased [Unknown]
  - Diarrhoea [Recovered/Resolved]
  - Back pain [Unknown]

NARRATIVE: CASE EVENT DATE: 20210607
